FAERS Safety Report 21088849 (Version 1)
Quarter: 2022Q3

REPORT INFORMATION
  Report Type: Spontaneous
  Country: US (occurrence: None)
  Receive Date: 20220715
  Receipt Date: 20220715
  Transmission Date: 20221027
  Serious: No
  Sender: FDA-Public Use
  Company Number: None

PATIENT
  Age: 71 Year
  Sex: Female
  Weight: 59.85 kg

DRUGS (2)
  1. PAXLOVID [Suspect]
     Active Substance: NIRMATRELVIR\RITONAVIR
     Indication: COVID-19
     Dosage: FREQUENCY : EVERY 12 HOURS;?
     Route: 048
     Dates: start: 20220629, end: 20220704
  2. DEVICE [Concomitant]
     Active Substance: DEVICE

REACTIONS (3)
  - Rhinorrhoea [None]
  - Coronavirus test positive [None]
  - Sneezing [None]

NARRATIVE: CASE EVENT DATE: 20220712
